FAERS Safety Report 4900752-8 (Version None)
Quarter: 2006Q1

REPORT INFORMATION
  Report Type: 
  Country: None (occurrence: None)
  Receive Date: 20060201
  Receipt Date: 20060116
  Transmission Date: 20060701
  Serious: Yes (Hospitalization, Other)
  Sender: FDA-Public Use
  Company Number: 2006S1000448

PATIENT
  Age: 62 Year
  Sex: Female

DRUGS (1)
  1. APOMORPHINE HYDROCHLORIDE (APOMORPHINE HYDROCHLORIDE) [Suspect]
     Indication: PARKINSON'S DISEASE
     Dosage: 4 MG/ SUBCUTANEOUS
     Route: 058

REACTIONS (4)
  - INJECTION SITE ABSCESS [None]
  - INJECTION SITE NODULE [None]
  - INJECTION SITE WARMTH [None]
  - WRONG TECHNIQUE IN DRUG USAGE PROCESS [None]
